FAERS Safety Report 6607102-X (Version None)
Quarter: 2010Q1

REPORT INFORMATION
  Report Type: 
  Country: None (occurrence: None)
  Receive Date: 20100219
  Receipt Date: 20100212
  Transmission Date: 20100710
  Serious: Yes (Congenital Anomaly)
  Sender: FDA-Public Use
  Company Number: 8049488

PATIENT
  Sex: Female
  Weight: 3.4 kg

DRUGS (3)
  1. KEPPRA [Suspect]
     Indication: EPILEPSY
     Dosage: 750 MG, TRANSPLACENTAL
     Route: 064
     Dates: end: 20081223
  2. VITAMIN TAB [Concomitant]
  3. FOLIC ACID [Concomitant]

REACTIONS (2)
  - ANKYLOGLOSSIA CONGENITAL [None]
  - MATERNAL DRUGS AFFECTING FOETUS [None]
